FAERS Safety Report 4557224-2 (Version None)
Quarter: 2005Q1

REPORT INFORMATION
  Report Type: 
  Country: None (occurrence: None)
  Receive Date: 20050118
  Receipt Date: 20050107
  Transmission Date: 20050727
  Serious: Yes (Death, Hospitalization, Other)
  Sender: FDA-Public Use
  Company Number: 044-0981-M0000186

PATIENT
  Age: 74 Year
  Sex: Male
  Weight: 83.6 kg

DRUGS (5)
  1. ATORVASTATIN (ATORVASTATIN) [Suspect]
     Indication: HYPERLIPIDAEMIA
     Dosage: 10 MG (1 N 1 D), ORAL
     Route: 048
     Dates: start: 19990608, end: 19990802
  2. ATORVASTATIN (ATORVASTATIN) [Suspect]
     Indication: HYPERLIPIDAEMIA
     Dosage: 10 MG (1 N 1 D), ORAL
     Route: 048
     Dates: start: 19990803
  3. ATENOLOL [Concomitant]
  4. ISOSORBIDE DINITRATE [Concomitant]
  5. WARFARIN SODIUM [Concomitant]

REACTIONS (3)
  - ATRIAL FIBRILLATION [None]
  - LUNG CARCINOMA CELL TYPE UNSPECIFIED STAGE IV [None]
  - MALIGNANT PLEURAL EFFUSION [None]
